FAERS Safety Report 22909798 (Version 2)
Quarter: 2024Q3

REPORT INFORMATION
  Report Type: Report from Study
  Country: US (occurrence: US)
  Receive Date: 20230906
  Receipt Date: 20240705
  Transmission Date: 20241016
  Serious: Yes (Death, Other)
  Sender: SANDOZ
  Company Number: US-002147023-NVSC2023US096053

PATIENT
  Sex: Female
  Weight: 113.38 kg

DRUGS (3)
  1. TREPROSTINIL [Suspect]
     Active Substance: TREPROSTINIL
     Dosage: 51 NG/KG/MIN
     Route: 058
     Dates: start: 20210728
  2. TREPROSTINIL [Suspect]
     Active Substance: TREPROSTINIL
     Indication: Pulmonary arterial hypertension
     Dosage: UNK, CONT 51 NG/KG/MIN
     Route: 058
     Dates: start: 20210728
  3. TREPROSTINIL [Suspect]
     Active Substance: TREPROSTINIL
     Dosage: UNK, CONT, 51 NG/KG/MIN
     Route: 058
     Dates: start: 20210728

REACTIONS (6)
  - Death [Fatal]
  - Dyspnoea [Unknown]
  - Pain [Unknown]
  - Back pain [Unknown]
  - Urticaria [Unknown]
  - Mobility decreased [Unknown]
